FAERS Safety Report 21073350 (Version 2)
Quarter: 2022Q3

REPORT INFORMATION
  Report Type: Report from Study
  Country: JP (occurrence: JP)
  Receive Date: 20220712
  Receipt Date: 20220720
  Transmission Date: 20221027
  Serious: Yes (Other)
  Sender: FDA-Public Use
  Company Number: JP-SA-2021SA056039

PATIENT
  Age: 64 Year
  Sex: Female
  Weight: 75.2 kg

DRUGS (25)
  1. DUPILUMAB [Suspect]
     Active Substance: DUPILUMAB
     Indication: Asthma
     Dosage: 300 MG, QOW
     Route: 058
     Dates: start: 20200730, end: 20210128
  2. DUPILUMAB [Suspect]
     Active Substance: DUPILUMAB
     Dosage: 600 MG, 1X
     Route: 058
     Dates: start: 20200716, end: 20200716
  3. PREDNISOLONE [Concomitant]
     Active Substance: PREDNISOLONE
     Indication: Eosinophilic granulomatosis with polyangiitis
     Dosage: DAILY DOSE: 5 MG
     Route: 048
     Dates: start: 20050218
  4. PREDNISOLONE [Concomitant]
     Active Substance: PREDNISOLONE
     Indication: Eosinophil count increased
     Dosage: TAPERED
     Route: 048
  5. PREDNISOLONE [Concomitant]
     Active Substance: PREDNISOLONE
     Dosage: INCREASED TO 7.5 MG/DAY
     Route: 048
  6. FLUTICASONE FUROATE\VILANTEROL TRIFENATATE [Concomitant]
     Active Substance: FLUTICASONE FUROATE\VILANTEROL TRIFENATATE
     Indication: Asthma
     Dosage: DAILY DOSE: 1 INHALATION
     Route: 055
     Dates: start: 20150402
  7. MONTELUKAST SODIUM [Concomitant]
     Active Substance: MONTELUKAST SODIUM
     Indication: Asthma
     Dosage: DAILY DOSE: 10 MG, SEVERAL TIMES/DAY
     Route: 048
     Dates: start: 20060116
  8. PROCATEROL HYDROCHLORIDE [Concomitant]
     Active Substance: PROCATEROL HYDROCHLORIDE
     Indication: Asthma
     Dosage: DAILY DOSE: 80 UG, SEVERAL TIMES A MONTH
     Route: 055
     Dates: start: 20051121
  9. XYZAL [Concomitant]
     Active Substance: LEVOCETIRIZINE DIHYDROCHLORIDE
     Indication: Product used for unknown indication
     Dosage: DAILY DOSE: 5 MG, SEVERAL TIMES/DAY
     Route: 048
     Dates: start: 20150917
  10. FLUTICASONE FUROATE [Concomitant]
     Active Substance: FLUTICASONE FUROATE
     Indication: Product used for unknown indication
     Dosage: DAILY DOSE: 110 UG, SEVERAL TIMES/DAY
     Route: 045
     Dates: start: 20100513
  11. POLAPREZINC [Concomitant]
     Active Substance: POLAPREZINC
     Indication: Product used for unknown indication
     Dosage: DAILY DOSE: 150 MG, SEVERAL TIMES/DAY
     Route: 048
     Dates: start: 20061019
  12. ZETIA [Concomitant]
     Active Substance: EZETIMIBE
     Indication: Product used for unknown indication
     Dosage: DAILY DOSE: 10 MG, SEVERAL TIMES/DAY
     Route: 048
     Dates: start: 20071129
  13. RABEPRAZOLE SODIUM [Concomitant]
     Active Substance: RABEPRAZOLE SODIUM
     Indication: Product used for unknown indication
     Dosage: DAILY DOSE: 10 MG, SEVERAL TIMES/DAY
     Route: 048
     Dates: start: 20090827
  14. MENATETRENONE [Concomitant]
     Active Substance: MENATETRENONE
     Indication: Product used for unknown indication
     Dosage: DAILY DOSE: 45 MG, SEVERAL TIMES/DAY
     Route: 048
     Dates: start: 20111110
  15. ICOSAPENT ETHYL [Concomitant]
     Active Substance: ICOSAPENT ETHYL
     Indication: Product used for unknown indication
     Dosage: DAILY DOSE: 2700 MG, SEVERAL TIMES/DAY
     Route: 048
     Dates: start: 20060119
  16. CLOPIDOGREL BISULFATE [Concomitant]
     Active Substance: CLOPIDOGREL BISULFATE
     Indication: Product used for unknown indication
     Dosage: DAILY DOSE: 75 MG, SEVERAL TIMES/DAY
     Route: 048
     Dates: start: 20121115
  17. CALCIUM CARBONATE\CHOLECALCIFEROL\MAGNESIUM CARBONATE [Concomitant]
     Active Substance: CALCIUM CARBONATE\CHOLECALCIFEROL\MAGNESIUM CARBONATE
     Indication: Product used for unknown indication
     Dosage: DAILY DOSE: 2 TABLETS, SEVERAL TIMES/DAY
     Route: 048
     Dates: start: 20200226
  18. DENOSUMAB [Concomitant]
     Active Substance: DENOSUMAB
     Indication: Product used for unknown indication
     Dosage: DAILY DOSE: 60 MG, SEVERAL TIMES/MONTH
     Route: 058
     Dates: start: 20200226
  19. FUROSEMIDE [Concomitant]
     Active Substance: FUROSEMIDE
     Indication: Product used for unknown indication
     Dosage: DAILY DOSE: 20 MG, SEVERAL TIMES/DAY
     Route: 048
     Dates: start: 20050502
  20. VALSARTAN [Concomitant]
     Active Substance: VALSARTAN
     Indication: Product used for unknown indication
     Dosage: DAILY DOSE: 40 MG, SEVERAL TIMES/DAY
     Route: 048
     Dates: start: 20050528
  21. SPIRONOLACTONE [Concomitant]
     Active Substance: SPIRONOLACTONE
     Indication: Product used for unknown indication
     Dosage: DAILY DOSE: 25 MG, SEVERAL TIMES/DAY
     Route: 048
     Dates: start: 20050502
  22. ELIQUIS [Concomitant]
     Active Substance: APIXABAN
     Indication: Product used for unknown indication
     Dosage: DAILY DOSE: 10 MG, SEVERAL TIMES/DAY
     Route: 048
     Dates: start: 20190130
  23. VERAPAMIL HYDROCHLORIDE [Concomitant]
     Active Substance: VERAPAMIL HYDROCHLORIDE
     Indication: Product used for unknown indication
     Dosage: DAILY DOSE: 80 MG, SEVERAL TIMES/DAY
     Route: 048
     Dates: start: 20190206
  24. CIFENLINE SUCCINATE [Concomitant]
     Active Substance: CIFENLINE SUCCINATE
     Indication: Product used for unknown indication
     Dosage: DAILY DOSE: 150 MG, SEVERAL TIMES/DAY
     Route: 048
     Dates: start: 20190206
  25. ETIZOLAM [Concomitant]
     Active Substance: ETIZOLAM
     Indication: Product used for unknown indication
     Dosage: 0.5 MG, ONCE DAILY AT BEDTIME
     Route: 048
     Dates: start: 20190911

REACTIONS (6)
  - Eosinophil count increased [Recovered/Resolved]
  - Cough [Recovered/Resolved]
  - Dyspnoea [Recovered/Resolved]
  - Atrial fibrillation [Recovered/Resolved]
  - Eosinophilic granulomatosis with polyangiitis [Recovering/Resolving]
  - Condition aggravated [Recovering/Resolving]

NARRATIVE: CASE EVENT DATE: 20201105
